FAERS Safety Report 7891382-7 (Version None)
Quarter: 2011Q4

REPORT INFORMATION
  Report Type: 
  Country: None (occurrence: None)
  Receive Date: 20111103
  Receipt Date: 20110802
  Transmission Date: 20120403
  Serious: Yes (Other)
  Sender: FDA-Public Use
  Company Number: US-AMGEN-USASP2011039275

PATIENT
  Age: 46 Year
  Sex: Male
  Weight: 111.11 kg

DRUGS (5)
  1. METHOTREXATE [Concomitant]
  2. ENBREL [Suspect]
     Indication: PSORIASIS
     Dosage: 50 MG, Q2WK
  3. PRILOSEC [Concomitant]
     Dosage: 1 MG, UNK
  4. FISH OIL [Concomitant]
  5. GLUCOSAMINE CHONDROITIN [Concomitant]

REACTIONS (4)
  - SHOULDER OPERATION [None]
  - WEIGHT INCREASED [None]
  - STAPHYLOCOCCAL INFECTION [None]
  - THERAPEUTIC RESPONSE DECREASED [None]
